FAERS Safety Report 23264833 (Version 2)
Quarter: 2023Q4

REPORT INFORMATION
  Report Type: Report from Study
  Country: US (occurrence: US)
  Receive Date: 20231206
  Receipt Date: 20231215
  Transmission Date: 20240110
  Serious: Yes (Other)
  Sender: FDA-Public Use
  Company Number: US-ABBVIE-5525882

PATIENT
  Sex: Male

DRUGS (1)
  1. SKYRIZI [Suspect]
     Active Substance: RISANKIZUMAB-RZAA
     Indication: Psoriasis
     Dosage: INJECT 150MG SUBCUTANEOUS AT WEEK 0 AND 4
     Route: 058
     Dates: end: 20221204

REACTIONS (8)
  - Intentional self-injury [Unknown]
  - Gait inability [Unknown]
  - Bone disorder [Not Recovered/Not Resolved]
  - Grip strength decreased [Unknown]
  - Mental status changes [Not Recovered/Not Resolved]
  - Psoriatic arthropathy [Unknown]
  - Stress [Not Recovered/Not Resolved]
  - Psoriasis [Not Recovered/Not Resolved]
